FAERS Safety Report 11310042 (Version 1)
Quarter: 2015Q3

REPORT INFORMATION
  Report Type: Spontaneous
  Country: IT (occurrence: IT)
  Receive Date: 20150724
  Receipt Date: 20150724
  Transmission Date: 20151125
  Serious: Yes (Hospitalization)
  Sender: FDA-Public Use
  Company Number: IT-UCBSA-2015023557

PATIENT
  Age: 68 Year
  Sex: Male

DRUGS (4)
  1. CLEXANE [Suspect]
     Active Substance: ENOXAPARIN SODIUM
     Indication: PROPHYLAXIS
     Dosage: 1 DF DAILY, 2000
     Route: 058
     Dates: start: 20150513, end: 20150515
  2. CLEXANE [Suspect]
     Active Substance: ENOXAPARIN SODIUM
     Dosage: 1 DF DAILY, 4000 IU AXA/0.4ML INJECTABLE SOLUTION
     Route: 058
     Dates: start: 20150516, end: 20150528
  3. KEPPRA [Suspect]
     Active Substance: LEVETIRACETAM
     Indication: EPILEPSY
     Dosage: 1 DF DAILY
     Route: 048
     Dates: start: 20150521, end: 20150531
  4. BACTRIM PERFUSIONE [Suspect]
     Active Substance: SULFAMETHOXAZOLE\TRIMETHOPRIM
     Indication: SERRATIA SEPSIS
     Dosage: 1 DF DAILY
     Route: 042
     Dates: start: 20150523, end: 20150526

REACTIONS (1)
  - Thrombocytopenia [Recovering/Resolving]

NARRATIVE: CASE EVENT DATE: 20150528
